FAERS Safety Report 13190797 (Version 1)
Quarter: 2017Q1

REPORT INFORMATION
  Report Type: Spontaneous
  Country: FR (occurrence: FR)
  Receive Date: 20170206
  Receipt Date: 20170206
  Transmission Date: 20170428
  Serious: Yes (Hospitalization, Other)
  Sender: FDA-Public Use
  Company Number: FR-ASTRAZENECA-2017SE12706

PATIENT
  Age: 21882 Day
  Sex: Male
  Weight: 61 kg

DRUGS (9)
  1. INEXIUM [Suspect]
     Active Substance: ESOMEPRAZOLE
     Route: 048
  2. ACUPAN [Suspect]
     Active Substance: NEFOPAM HYDROCHLORIDE
     Dosage: UNKNOWN
     Route: 065
  3. LEVOFLOXACINE [Suspect]
     Active Substance: LEVOFLOXACIN
     Indication: ANTIBIOTIC PROPHYLAXIS
     Dosage: UNKNOWN
     Route: 065
     Dates: start: 20170112, end: 20170113
  4. ACTISKENAN [Suspect]
     Active Substance: MORPHINE SULFATE
     Dosage: UNKNOWN
     Route: 065
  5. LEVOCARNIL [Suspect]
     Active Substance: LEVOCARNITINE
     Dosage: UNKNOWN
     Route: 065
     Dates: start: 20170112
  6. PYOSTACINE [Suspect]
     Active Substance: PRISTINAMYCIN
     Dosage: UNKNOWN
     Route: 065
     Dates: end: 20170111
  7. PARACETAMOL [Suspect]
     Active Substance: ACETAMINOPHEN
     Dosage: 4 G, DOSING UNKNOWN
     Route: 042
  8. LOVENOX [Suspect]
     Active Substance: ENOXAPARIN SODIUM
     Dosage: UNKNOWN
     Route: 065
  9. COLCHICINE. [Suspect]
     Active Substance: COLCHICINE
     Indication: BEHCET^S SYNDROME
     Dosage: UNKNOWN
     Route: 065
     Dates: start: 20170112, end: 20170113

REACTIONS (8)
  - Cervical vertebral fracture [Unknown]
  - Cholestasis [Recovering/Resolving]
  - Lumbar vertebral fracture [Unknown]
  - Hepatocellular injury [Recovering/Resolving]
  - Pulmonary contusion [Unknown]
  - Mediastinal haemorrhage [Unknown]
  - Road traffic accident [Unknown]
  - Costochondral separation [Unknown]

NARRATIVE: CASE EVENT DATE: 20170113
